FAERS Safety Report 21258978 (Version 1)
Quarter: 2022Q3

REPORT INFORMATION
  Report Type: Spontaneous
  Country: US (occurrence: US)
  Receive Date: 20220826
  Receipt Date: 20220826
  Transmission Date: 20221027
  Serious: No
  Sender: FDA-Public Use
  Company Number: US-UNITED THERAPEUTICS-UNT-2022-017130

PATIENT
  Sex: Female

DRUGS (10)
  1. ORENITRAM [Suspect]
     Active Substance: TREPROSTINIL
     Indication: Pulmonary arterial hypertension
     Dosage: UNK
     Route: 048
     Dates: start: 20220519
  2. ORENITRAM [Suspect]
     Active Substance: TREPROSTINIL
     Dosage: 3.25 MG (3 TABLETS OF 0.25 MG AND 1 TABLET OF 2.5 MG), TID
     Route: 048
  3. ORENITRAM [Suspect]
     Active Substance: TREPROSTINIL
     Indication: Pulmonary arterial hypertension
     Dosage: UNK
     Route: 048
  4. ORENITRAM [Suspect]
     Active Substance: TREPROSTINIL
     Indication: Pulmonary arterial hypertension
     Dosage: UNK
     Route: 048
  5. ORENITRAM [Suspect]
     Active Substance: TREPROSTINIL
     Indication: Pulmonary arterial hypertension
     Dosage: UNK
     Route: 048
  6. ORENITRAM [Suspect]
     Active Substance: TREPROSTINIL
     Indication: Pulmonary arterial hypertension
     Dosage: UNK
     Route: 048
  7. REMODULIN [Suspect]
     Active Substance: TREPROSTINIL
     Indication: Pulmonary arterial hypertension
     Dosage: UNK, CONTINUING
     Route: 058
     Dates: start: 20200413
  8. REMODULIN [Suspect]
     Active Substance: TREPROSTINIL
     Dosage: 0.0514 ?G/KG, CONTINUING
     Route: 058
  9. BOSENTAN [Concomitant]
     Active Substance: BOSENTAN
     Indication: Pulmonary arterial hypertension
     Dosage: 64 MG, BID
     Route: 048
     Dates: start: 20160414
  10. BOSENTAN [Concomitant]
     Active Substance: BOSENTAN
     Dosage: 3.25 MG, BID
     Route: 048

REACTIONS (3)
  - Walking distance test abnormal [Unknown]
  - Iron deficiency [Unknown]
  - Gastrointestinal disorder [Unknown]

NARRATIVE: CASE EVENT DATE: 20220101
